FAERS Safety Report 6276889-0 (Version None)
Quarter: 2009Q3

REPORT INFORMATION
  Report Type: 
  Country: None (occurrence: None)
  Receive Date: 20090722
  Receipt Date: 20081006
  Transmission Date: 20100115
  Serious: No
  Sender: FDA-Public Use
  Company Number: US-BRISTOL-MYERS SQUIBB COMPANY-14359665

PATIENT
  Age: 54 Year
  Sex: Male
  Weight: 84 kg

DRUGS (15)
  1. COUMADIN [Suspect]
     Dosage: COUMADIN 5MG, 4 DAYS PER WK, NO DOSES TUES,WED+ THURS. DOSE INCREASED TO 5MG
  2. WARFARIN SODIUM [Suspect]
     Dates: start: 20010101
  3. PERCOCET [Concomitant]
  4. SIMVASTATIN [Concomitant]
  5. CYMBALTA [Concomitant]
  6. LAMICTAL [Concomitant]
  7. POTASSIUM CHLORIDE [Concomitant]
  8. FUROSEMIDE [Concomitant]
  9. VERAPAMIL [Concomitant]
  10. CLONAZEPAM [Concomitant]
  11. COREG [Concomitant]
  12. FAMOTIDINE [Concomitant]
  13. DANTRIUM [Concomitant]
  14. ALTACE [Concomitant]
  15. UROXATRAL [Concomitant]

REACTIONS (1)
  - INTERNATIONAL NORMALISED RATIO FLUCTUATION [None]
